FAERS Safety Report 21829567 (Version 1)
Quarter: 2023Q1

REPORT INFORMATION
  Report Type: Other
  Country: None (occurrence: JP)
  Receive Date: 20230106
  Receipt Date: 20230106
  Transmission Date: 20230417
  Serious: Yes (Death, Life-Threatening, Hospitalization, Other)
  Sender: FDA-Public Use
  Company Number: JP-BIOLOGICAL E. LTD-2136483

PATIENT
  Age: 25 Year
  Sex: Female

DRUGS (1)
  1. HEPARIN SODIUM [Suspect]
     Active Substance: HEPARIN SODIUM
     Indication: Cerebral venous thrombosis
     Route: 040

REACTIONS (4)
  - Maternal exposure during pregnancy [Unknown]
  - Abortion induced [Unknown]
  - Drug ineffective [Fatal]
  - Drug resistance [Unknown]
